FAERS Safety Report 15413584 (Version 1)
Quarter: 2018Q3

REPORT INFORMATION
  Report Type: Spontaneous
  Country: US (occurrence: US)
  Receive Date: 20180921
  Receipt Date: 20180921
  Transmission Date: 20181010
  Serious: No
  Sender: FDA-Public Use
  Company Number: US-GREER LABORATORIES, INC.-2055198

PATIENT
  Age: 32 Year
  Sex: Female
  Weight: 68.18 kg

DRUGS (1)
  1. STANDARDIZED CAT HAIR [Suspect]
     Active Substance: FELIS CATUS HAIR
     Indication: MULTIPLE ALLERGIES
     Route: 003

REACTIONS (1)
  - Skin test negative [Unknown]

NARRATIVE: CASE EVENT DATE: 20180823
